FAERS Safety Report 14905847 (Version 1)
Quarter: 2018Q2

REPORT INFORMATION
  Report Type: Spontaneous
  Country: US (occurrence: US)
  Receive Date: 20180517
  Receipt Date: 20180517
  Transmission Date: 20180711
  Serious: No
  Sender: FDA-Public Use
  Company Number: US-SA-2018SA020340

PATIENT
  Sex: Male

DRUGS (4)
  1. NOVOLOG [Concomitant]
     Active Substance: INSULIN ASPART
     Dosage: 8-12 UNITS; 2-3 TIMES DAILY
  2. LANTUS [Suspect]
     Active Substance: INSULIN GLARGINE
     Route: 051
  3. SOLOSTAR [Concomitant]
     Active Substance: DEVICE
  4. TOUJEO [Concomitant]
     Active Substance: INSULIN GLARGINE

REACTIONS (1)
  - Blood glucose abnormal [Unknown]
